FAERS Safety Report 6492036-4 (Version None)
Quarter: 2009Q4

REPORT INFORMATION
  Report Type: 
  Country: None (occurrence: None)
  Receive Date: 20091125
  Receipt Date: 20090317
  Transmission Date: 20100525
  Serious: Yes (Other)
  Sender: FDA-Public Use
  Company Number: 2009BH004259

PATIENT
  Sex: Male

DRUGS (10)
  1. DIANEAL [Suspect]
     Indication: PERITONEAL DIALYSIS
     Dosage: ; IP
     Route: 033
  2. DIANEAL [Suspect]
     Dosage: ; IP
     Route: 033
  3. ASPIRIN [Concomitant]
  4. LASIX [Concomitant]
  5. ISOSORBIDE [Concomitant]
  6. LISINOPRIL [Concomitant]
  7. LOPRESSOR [Concomitant]
  8. REGLAN [Concomitant]
  9. RENAGEL [Concomitant]
  10. ZOCOR [Concomitant]

REACTIONS (5)
  - CATHETER SITE INFECTION [None]
  - MALAISE [None]
  - PERITONEAL DIALYSIS COMPLICATION [None]
  - PERITONITIS BACTERIAL [None]
  - VOMITING [None]
